FAERS Safety Report 5934215-8 (Version None)
Quarter: 2008Q4

REPORT INFORMATION
  Report Type: 
  Country: None (occurrence: None)
  Receive Date: 20081028
  Receipt Date: 20081028
  Transmission Date: 20090506
  Serious: Yes (Other)
  Sender: FDA-Public Use
  Company Number: None

PATIENT
  Sex: Male
  Weight: 71.8 kg

DRUGS (2)
  1. RITUXIMAB 500 MG GENETECH [Suspect]
     Indication: CHRONIC LYMPHOCYTIC LEUKAEMIA
     Dosage: 500 MG Q WEEK IV
     Route: 042
     Dates: start: 20081024, end: 20081024
  2. RITUXIMAB 100 MG GENETECH [Suspect]
     Indication: CHRONIC LYMPHOCYTIC LEUKAEMIA
     Dosage: 200 Q WEEK IV
     Route: 042
     Dates: start: 20081024, end: 20081024

REACTIONS (7)
  - CHEST PAIN [None]
  - HYPOTENSION [None]
  - INFUSION RELATED REACTION [None]
  - NAUSEA [None]
  - PALLOR [None]
  - PARAESTHESIA [None]
  - PRURITUS [None]
